FAERS Safety Report 25538462 (Version 1)
Quarter: 2025Q3

REPORT INFORMATION
  Report Type: Spontaneous
  Country: CA (occurrence: CA)
  Receive Date: 20250710
  Receipt Date: 20250710
  Transmission Date: 20251021
  Serious: Yes (Death)
  Sender: HIKMA
  Company Number: CA-HIKMA PHARMACEUTICALS USA INC.-CA-H14001-25-08247

PATIENT
  Age: 31 Year
  Sex: Male

DRUGS (6)
  1. ALECTINIB [Suspect]
     Active Substance: ALECTINIB
     Indication: Rhabdomyosarcoma
     Dosage: 600 MILLIGRAM, Q12H
     Route: 048
  2. CISPLATIN [Suspect]
     Active Substance: CISPLATIN
     Indication: Osteosarcoma
     Route: 065
  3. DOXORUBICIN [Suspect]
     Active Substance: DOXORUBICIN
     Indication: Osteosarcoma
     Route: 065
  4. ETOPOSIDE [Suspect]
     Active Substance: ETOPOSIDE
     Indication: Rhabdomyosarcoma
     Route: 065
  5. IFOSFAMIDE [Suspect]
     Active Substance: IFOSFAMIDE
     Indication: Rhabdomyosarcoma
     Route: 065
  6. REGORAFENIB [Suspect]
     Active Substance: REGORAFENIB
     Indication: Rhabdomyosarcoma
     Dosage: 160 MILLIGRAM, QD
     Route: 048

REACTIONS (3)
  - Mucosal inflammation [Fatal]
  - Toxicity to various agents [Fatal]
  - Drug ineffective [Fatal]
